FAERS Safety Report 5000595-3 (Version None)
Quarter: 2006Q2

REPORT INFORMATION
  Report Type: 
  Country: None (occurrence: None)
  Receive Date: 20060512
  Receipt Date: 20060504
  Transmission Date: 20061013
  Serious: Yes (Other)
  Sender: FDA-Public Use
  Company Number: BE-JNJFOC-20060301035

PATIENT
  Sex: Male
  Weight: 70 kg

DRUGS (3)
  1. RISPERIDONE [Suspect]
     Indication: AGGRESSION
     Route: 048
  2. TOPAMAX [Concomitant]
     Indication: EPILEPSY
     Route: 048
  3. SEROXAT [Concomitant]
     Indication: OBSESSIVE-COMPULSIVE DISORDER
     Route: 048

REACTIONS (1)
  - PANCYTOPENIA [None]
